FAERS Safety Report 17263968 (Version 2)
Quarter: 2020Q1

REPORT INFORMATION
  Report Type: Spontaneous
  Country: FR (occurrence: FR)
  Receive Date: 20200113
  Receipt Date: 20200217
  Transmission Date: 20200409
  Serious: Yes (Hospitalization)
  Sender: FDA-Public Use
  Company Number: FR-MYLANLABS-2020M1002930

PATIENT
  Age: 68 Year
  Sex: Female

DRUGS (2)
  1. KETOPROFEN. [Suspect]
     Active Substance: KETOPROFEN
     Indication: BACK PAIN
     Dosage: 200 MILLIGRAM
     Route: 048
     Dates: start: 201909, end: 20190922
  2. IBUPROFEN. [Suspect]
     Active Substance: IBUPROFEN
     Indication: BACK PAIN
     Dosage: 1200 MILLIGRAM
     Route: 048
     Dates: start: 20190823, end: 20190922

REACTIONS (5)
  - Intervertebral discitis [Not Recovered/Not Resolved]
  - Meningitis [Not Recovered/Not Resolved]
  - Coma [Not Recovered/Not Resolved]
  - Infection [Not Recovered/Not Resolved]
  - Hydrocephalus [Not Recovered/Not Resolved]

NARRATIVE: CASE EVENT DATE: 20190922
